FAERS Safety Report 24570670 (Version 3)
Quarter: 2025Q1

REPORT INFORMATION
  Report Type: Spontaneous
  Country: JP (occurrence: JP)
  Receive Date: 20241031
  Receipt Date: 20250206
  Transmission Date: 20250408
  Serious: Yes (Death, Hospitalization, Other)
  Sender: GLAXOSMITHKLINE
  Company Number: None

PATIENT

DRUGS (5)
  1. NUCALA [Suspect]
     Active Substance: MEPOLIZUMAB
     Indication: Eosinophilic granulomatosis with polyangiitis
     Dosage: 300 MG, Q4W
     Route: 058
     Dates: start: 20200807, end: 20230220
  2. VFEND [Concomitant]
     Active Substance: VORICONAZOLE
  3. VONOPRAZAN FUMARATE [Concomitant]
     Active Substance: VONOPRAZAN FUMARATE
  4. URSO [Concomitant]
     Active Substance: URSODIOL
  5. CITRIC ACID [Concomitant]
     Active Substance: CITRIC ACID MONOHYDRATE

REACTIONS (3)
  - Pneumonia aspiration [Fatal]
  - Immobilisation syndrome [Fatal]
  - Pneumonia fungal [Unknown]

NARRATIVE: CASE EVENT DATE: 20230201
